FAERS Safety Report 26072164 (Version 1)
Quarter: 2025Q4

REPORT INFORMATION
  Report Type: Spontaneous
  Country: US (occurrence: US)
  Receive Date: 20251120
  Receipt Date: 20251120
  Transmission Date: 20260117
  Serious: No
  Sender: JOHNSON AND JOHNSON
  Company Number: US-JNJFOC-20251031167

PATIENT
  Age: 71 Year
  Sex: Male

DRUGS (2)
  1. INLEXZO [Suspect]
     Active Substance: GEMCITABINE
     Indication: Bladder transitional cell carcinoma
     Route: 042
  2. INLEXZO [Suspect]
     Active Substance: GEMCITABINE
     Route: 042

REACTIONS (1)
  - Off label use [Unknown]
